FAERS Safety Report 10524069 (Version 1)
Quarter: 2014Q4

REPORT INFORMATION
  Report Type: Spontaneous
  Country: US (occurrence: None)
  Receive Date: 20141015
  Receipt Date: 20141015
  Transmission Date: 20150528
  Serious: No
  Sender: FDA-Public Use
  Company Number: None

PATIENT
  Age: 39 Year
  Sex: Female
  Weight: 121.8 kg

DRUGS (2)
  1. OXACILLIN [Suspect]
     Active Substance: OXACILLIN SODIUM
     Indication: STAPHYLOCOCCAL INFECTION
     Route: 042
     Dates: start: 20140807, end: 20140827
  2. OXACILLIN [Suspect]
     Active Substance: OXACILLIN SODIUM
     Indication: OSTEOMYELITIS
     Route: 042
     Dates: start: 20140807, end: 20140827

REACTIONS (3)
  - Blood alkaline phosphatase increased [None]
  - Aspartate aminotransferase increased [None]
  - Alanine aminotransferase increased [None]

NARRATIVE: CASE EVENT DATE: 20140823
